FAERS Safety Report 16045375 (Version 1)
Quarter: 2019Q1

REPORT INFORMATION
  Report Type: Spontaneous
  Country: PT (occurrence: PT)
  Receive Date: 20190307
  Receipt Date: 20190307
  Transmission Date: 20190418
  Serious: Yes (Other)
  Sender: FDA-Public Use
  Company Number: PT-AMGEN-PRTSP2019033646

PATIENT
  Age: 45 Year
  Sex: Female

DRUGS (2)
  1. DOCETAXEL. [Suspect]
     Active Substance: DOCETAXEL
     Indication: INVASIVE DUCTAL BREAST CARCINOMA
     Dosage: 6 CYCLES
     Route: 065
     Dates: start: 20170106
  2. XGEVA [Suspect]
     Active Substance: DENOSUMAB
     Indication: INVASIVE DUCTAL BREAST CARCINOMA
     Dosage: 6 CYCLES
     Route: 065
     Dates: start: 20170106

REACTIONS (6)
  - Dysgeusia [Unknown]
  - Neuropathy peripheral [Unknown]
  - Fatigue [Unknown]
  - Myalgia [Unknown]
  - Nail toxicity [Unknown]
  - Alopecia [Unknown]

NARRATIVE: CASE EVENT DATE: 201705
